FAERS Safety Report 6023049-4 (Version None)
Quarter: 2008Q4

REPORT INFORMATION
  Report Type: 
  Country: None (occurrence: None)
  Receive Date: 20081230
  Receipt Date: 20081102
  Transmission Date: 20090506
  Serious: No
  Sender: FDA-Public Use
  Company Number: US-ABBOTT-08P-163-0485253-00

PATIENT
  Sex: Female
  Weight: 22.7 kg

DRUGS (1)
  1. OMNICEF [Suspect]
     Indication: SINUSITIS
     Route: 048
     Dates: start: 20081028, end: 20081103

REACTIONS (2)
  - DIARRHOEA [None]
  - VOMITING [None]
